FAERS Safety Report 9957045 (Version 1)
Quarter: 2014Q1

REPORT INFORMATION
  Report Type: Spontaneous
  Country: US (occurrence: US)
  Receive Date: 20140304
  Receipt Date: 20140304
  Transmission Date: 20141002
  Serious: No
  Sender: FDA-Public Use
  Company Number: US-ABBVIE-13P-163-1097570-00

PATIENT
  Age: 18 Year
  Sex: Male

DRUGS (1)
  1. HUMIRA [Suspect]
     Indication: SPONDYLITIS
     Dates: start: 201206, end: 201301

REACTIONS (4)
  - Off label use [Unknown]
  - Rash [Recovered/Resolved]
  - Rash [Recovered/Resolved]
  - Hepatic enzyme increased [Recovered/Resolved]
